FAERS Safety Report 19692556 (Version 1)
Quarter: 2021Q3

REPORT INFORMATION
  Report Type: Spontaneous
  Country: US (occurrence: US)
  Receive Date: 20210812
  Receipt Date: 20210812
  Transmission Date: 20211014
  Serious: No
  Sender: FDA-Public Use
  Company Number: US-ASSERTIO THERAPEUTICS, INC.-US-2020AST000270

PATIENT
  Sex: Female

DRUGS (1)
  1. CAMBIA [Suspect]
     Active Substance: DICLOFENAC POTASSIUM
     Indication: MIGRAINE
     Dosage: 50 MG, MIX 1 PACKET WITH 1?2 OUNCES OF WATER AND DRINK IMMEDIATELY AS A SINGLE DOSE
     Route: 048

REACTIONS (2)
  - Dyskinesia [Unknown]
  - Headache [Unknown]
